FAERS Safety Report 21683159 (Version 1)
Quarter: 2022Q4

REPORT INFORMATION
  Report Type: Spontaneous
  Country: US (occurrence: US)
  Receive Date: 20221205
  Receipt Date: 20221205
  Transmission Date: 20230113
  Serious: Yes (Other)
  Sender: FDA-Public Use
  Company Number: US-CHEPLA-2022011633

PATIENT
  Age: 22 Year
  Sex: Female

DRUGS (2)
  1. HYDROXYUREA [Suspect]
     Active Substance: HYDROXYUREA
     Indication: Sickle cell disease
     Dosage: DAILY DOSE: 1500 MILLIGRAM
  2. FOLIC ACID [Suspect]
     Active Substance: FOLIC ACID
     Indication: Sickle cell disease
     Dosage: DAILY DOSE: 1 MILLIGRAM

REACTIONS (1)
  - Idiopathic intracranial hypertension [Recovering/Resolving]
